FAERS Safety Report 9441811 (Version 1)
Quarter: 2013Q3

REPORT INFORMATION
  Report Type: Spontaneous
  Country: US (occurrence: US)
  Receive Date: 20130806
  Receipt Date: 20130806
  Transmission Date: 20140515
  Serious: No
  Sender: FDA-Public Use
  Company Number: US-PFIZER INC-2013226276

PATIENT
  Sex: 0

DRUGS (2)
  1. PROPANOLOL HCL [Suspect]
     Indication: BLOOD PRESSURE ABNORMAL
     Dosage: UNK
  2. PROPANOLOL HCL [Suspect]
     Indication: MIGRAINE

REACTIONS (1)
  - Drug ineffective [Unknown]
